FAERS Safety Report 17008639 (Version 2)
Quarter: 2020Q1

REPORT INFORMATION
  Report Type: Spontaneous
  Country: US (occurrence: US)
  Receive Date: 20191108
  Receipt Date: 20200226
  Transmission Date: 20200409
  Serious: No
  Sender: FDA-Public Use
  Company Number: US-VIFOR (INTERNATIONAL) INC.-VIT-2019-10843

PATIENT
  Sex: Male

DRUGS (1)
  1. VELTASSA [Suspect]
     Active Substance: PATIROMER
     Indication: BLOOD POTASSIUM DECREASED
     Route: 048
     Dates: start: 201903

REACTIONS (2)
  - Constipation [Unknown]
  - Malabsorption [Unknown]

NARRATIVE: CASE EVENT DATE: 2019
